FAERS Safety Report 18918635 (Version 1)
Quarter: 2021Q1

REPORT INFORMATION
  Report Type: Spontaneous
  Country: JP (occurrence: JP)
  Receive Date: 20210220
  Receipt Date: 20210220
  Transmission Date: 20210420
  Serious: Yes (Other)
  Sender: FDA-Public Use
  Company Number: JP-LUPIN PHARMACEUTICALS INC.-2021-01961

PATIENT
  Age: 4 Month
  Sex: Female

DRUGS (7)
  1. OXCARBAZEPINE. [Suspect]
     Active Substance: OXCARBAZEPINE
     Indication: EPILEPTIC ENCEPHALOPATHY
     Dosage: UNK
     Route: 065
  2. PREDNISOLONE. [Suspect]
     Active Substance: PREDNISOLONE
     Indication: EPILEPTIC ENCEPHALOPATHY
     Dosage: UNK
     Route: 065
  3. VIGABATRIN. [Suspect]
     Active Substance: VIGABATRIN
     Indication: EPILEPTIC ENCEPHALOPATHY
     Dosage: UNK
     Route: 065
  4. CLONAZEPAM. [Suspect]
     Active Substance: CLONAZEPAM
     Indication: EPILEPTIC ENCEPHALOPATHY
     Dosage: UNK
     Route: 065
  5. VALPROIC ACID. [Suspect]
     Active Substance: VALPROIC ACID
     Indication: EPILEPTIC ENCEPHALOPATHY
     Dosage: UNK
     Route: 065
  6. TOPIRAMAT [Suspect]
     Active Substance: TOPIRAMATE
     Indication: EPILEPTIC ENCEPHALOPATHY
     Dosage: UNK
     Route: 065
  7. LEVETIRACETAM. [Suspect]
     Active Substance: LEVETIRACETAM
     Indication: EPILEPTIC ENCEPHALOPATHY
     Dosage: UNK
     Route: 065

REACTIONS (3)
  - Therapy non-responder [Unknown]
  - Therapeutic product effect decreased [Unknown]
  - Decreased appetite [Unknown]
